FAERS Safety Report 14759191 (Version 1)
Quarter: 2018Q2

REPORT INFORMATION
  Report Type: Spontaneous
  Country: KR (occurrence: KR)
  Receive Date: 20180413
  Receipt Date: 20180413
  Transmission Date: 20180711
  Serious: Yes (Other)
  Sender: FDA-Public Use
  Company Number: KR-PFIZER INC-2018142456

PATIENT
  Age: 67 Year
  Sex: Male

DRUGS (1)
  1. SILDENAFIL CITRATE. [Suspect]
     Active Substance: SILDENAFIL CITRATE
     Dosage: 800 MG(8 TABLETS), SINGLE
     Route: 048

REACTIONS (6)
  - Chorioretinal disorder [Recovered/Resolved]
  - Visual field defect [Recovered/Resolved]
  - Intentional overdose [Unknown]
  - Optical coherence tomography abnormal [Recovered/Resolved]
  - Colour blindness [Recovered/Resolved]
  - Chromatopsia [Recovered/Resolved]
